FAERS Safety Report 25983669 (Version 1)
Quarter: 2025Q4

REPORT INFORMATION
  Report Type: Report from Study
  Country: BR (occurrence: BR)
  Receive Date: 20251031
  Receipt Date: 20251031
  Transmission Date: 20260117
  Serious: Yes (Hospitalization)
  Sender: BAYER HEALTHCARE PHARMACEUTICALS INC.
  Company Number: BR-BAYER-2025A132748

PATIENT
  Age: 73 Year
  Sex: Male

DRUGS (5)
  1. STIVARGA [Suspect]
     Active Substance: REGORAFENIB MONOHYDRATE
     Indication: Colorectal cancer
     Dosage: 80 MG, QD
     Dates: start: 202508, end: 2025
  2. STIVARGA [Suspect]
     Active Substance: REGORAFENIB MONOHYDRATE
     Indication: Colorectal cancer
     Dosage: 120 MG, QD
     Dates: start: 2025, end: 2025
  3. STIVARGA [Suspect]
     Active Substance: REGORAFENIB MONOHYDRATE
     Indication: Colorectal cancer
     Dosage: 160 MG, QD
     Dates: start: 2025, end: 2025
  4. STIVARGA [Suspect]
     Active Substance: REGORAFENIB MONOHYDRATE
     Indication: Colorectal cancer
     Dosage: 80 MG, QD
     Dates: start: 20250929, end: 20251010
  5. PITAVASTATIN CALCIUM [Concomitant]
     Active Substance: PITAVASTATIN CALCIUM
     Indication: Blood cholesterol
     Dosage: 4 MG, QD

REACTIONS (16)
  - Malaise [None]
  - Sensitive skin [Recovering/Resolving]
  - Blood test abnormal [Not Recovered/Not Resolved]
  - Fatigue [Recovering/Resolving]
  - Lethargy [Not Recovered/Not Resolved]
  - Decreased activity [Not Recovered/Not Resolved]
  - Decreased appetite [Recovering/Resolving]
  - Weight increased [Not Recovered/Not Resolved]
  - Dry skin [Recovering/Resolving]
  - Dysphonia [Not Recovered/Not Resolved]
  - Protein total decreased [Not Recovered/Not Resolved]
  - Incorrect dose administered [Not Recovered/Not Resolved]
  - Gastrooesophageal reflux disease [None]
  - Drug ineffective [None]
  - Rash macular [Recovering/Resolving]
  - Abdominal pain upper [None]

NARRATIVE: CASE EVENT DATE: 20250101
